FAERS Safety Report 5144353-8 (Version None)
Quarter: 2006Q4

REPORT INFORMATION
  Report Type: 
  Country: None (occurrence: None)
  Receive Date: 20061030
  Receipt Date: 20061020
  Transmission Date: 20070319
  Serious: Yes (Hospitalization, Other)
  Sender: FDA-Public Use
  Company Number: US200606001937

PATIENT
  Age: 28 Year
  Sex: Male
  Weight: 137 kg

DRUGS (2)
  1. ZYPREXA [Suspect]
     Dosage: 15 MG
     Dates: start: 19960601
  2. CLOZAPINE [Concomitant]

REACTIONS (8)
  - BLOOD CHOLESTEROL ABNORMAL [None]
  - BLOOD GLUCOSE ABNORMAL [None]
  - DIABETES MELLITUS [None]
  - HEPATITIS VIRAL [None]
  - HYPERTENSION [None]
  - METABOLIC DISORDER [None]
  - MYOCARDIAL ISCHAEMIA [None]
  - PANCREATITIS [None]
